FAERS Safety Report 18700823 (Version 1)
Quarter: 2021Q1

REPORT INFORMATION
  Report Type: Spontaneous
  Country: US (occurrence: US)
  Receive Date: 20210105
  Receipt Date: 20210105
  Transmission Date: 20210419
  Serious: Yes (Other)
  Sender: FDA-Public Use
  Company Number: US-PFIZER INC-2020517943

PATIENT
  Age: 36 Year
  Sex: Female

DRUGS (4)
  1. IMMUNOGLOBULIN I.V [Suspect]
     Active Substance: HUMAN IMMUNOGLOBULIN G
     Indication: EVIDENCE BASED TREATMENT
     Dosage: UNK
     Route: 042
  2. MYFORTIC [Concomitant]
     Active Substance: MYCOPHENOLATE SODIUM
     Dosage: UNK (DOSE INCREASED)
  3. RITUXIMAB. [Suspect]
     Active Substance: RITUXIMAB
     Indication: EVIDENCE BASED TREATMENT
     Dosage: UNK
  4. MYFORTIC [Concomitant]
     Active Substance: MYCOPHENOLATE SODIUM
     Indication: TRANSPLANT
     Dosage: UNK

REACTIONS (3)
  - Acute respiratory failure [Unknown]
  - Anaemia [Unknown]
  - Renal failure [Unknown]
